FAERS Safety Report 5897228-0 (Version None)
Quarter: 2008Q3

REPORT INFORMATION
  Report Type: 
  Country: None (occurrence: None)
  Receive Date: 20080923
  Receipt Date: 20080911
  Transmission Date: 20090109
  Serious: Yes (Other)
  Sender: FDA-Public Use
  Company Number: 52331

PATIENT
  Age: 15 Month
  Sex: Female

DRUGS (1)
  1. KETAMINE HCL [Suspect]
     Dosage: 10MG

REACTIONS (3)
  - TORSADE DE POINTES [None]
  - VENTRICULAR FIBRILLATION [None]
  - VENTRICULAR TACHYCARDIA [None]
